FAERS Safety Report 22615111 (Version 1)
Quarter: 2023Q2

REPORT INFORMATION
  Report Type: Spontaneous
  Country: IT (occurrence: IT)
  Receive Date: 20230619
  Receipt Date: 20230619
  Transmission Date: 20230722
  Serious: Yes (Hospitalization, Other)
  Sender: FDA-Public Use
  Company Number: IT-AMGEN-ITASP2023103162

PATIENT
  Age: 88 Year
  Sex: Male

DRUGS (4)
  1. XGEVA [Suspect]
     Active Substance: DENOSUMAB
     Indication: Hormone-refractory prostate cancer
     Dosage: UNK
     Route: 065
     Dates: start: 201906
  2. XGEVA [Suspect]
     Active Substance: DENOSUMAB
     Indication: Metastases to bone
  3. ENZALUTAMIDE [Concomitant]
     Active Substance: ENZALUTAMIDE
     Indication: Hormone-refractory prostate cancer
     Dosage: UNK
     Route: 065
     Dates: start: 201906
  4. TRIPTORELIN [Concomitant]
     Active Substance: TRIPTORELIN
     Indication: Hormone-refractory prostate cancer
     Dosage: UNK

REACTIONS (7)
  - Hormone-refractory prostate cancer [Unknown]
  - Mitral valve incompetence [Recovered/Resolved]
  - Bradycardia [Recovered/Resolved]
  - Arteriosclerosis coronary artery [Recovered/Resolved]
  - Tricuspid valve incompetence [Recovered/Resolved]
  - Aortic stenosis [Recovered/Resolved]
  - Ventricular extrasystoles [Recovered/Resolved]

NARRATIVE: CASE EVENT DATE: 20210901
